FAERS Safety Report 24901433 (Version 1)
Quarter: 2025Q1

REPORT INFORMATION
  Report Type: Spontaneous
  Country: RU (occurrence: RU)
  Receive Date: 20250129
  Receipt Date: 20250129
  Transmission Date: 20250409
  Serious: Yes (Hospitalization, Other)
  Sender: JOHNSON AND JOHNSON
  Company Number: None

PATIENT
  Age: 64 Year
  Weight: 112 kg

DRUGS (3)
  1. XARELTO [Suspect]
     Active Substance: RIVAROXABAN
     Indication: Atrial fibrillation
     Dosage: 15 MG, QD
     Route: 048
     Dates: end: 20241227
  2. SOTALOL [Concomitant]
     Active Substance: SOTALOL
     Indication: Product used for unknown indication
     Dosage: 80 MG, BID
  3. PERINDOPRIL [Concomitant]
     Active Substance: PERINDOPRIL
     Indication: Product used for unknown indication
     Dosage: 5 MG, QD

REACTIONS (7)
  - Haemorrhagic stroke [Unknown]
  - Blood pressure increased [Unknown]
  - Carotid arteriosclerosis [Unknown]
  - Asthenia [Unknown]
  - Headache [Unknown]
  - Hypoaesthesia oral [Unknown]
  - Paranasal cyst [Unknown]

NARRATIVE: CASE EVENT DATE: 20241227
